FAERS Safety Report 15498703 (Version 1)
Quarter: 2018Q4

REPORT INFORMATION
  Report Type: Spontaneous
  Country: US (occurrence: US)
  Receive Date: 20181015
  Receipt Date: 20181015
  Transmission Date: 20190205
  Serious: No
  Sender: FDA-Public Use
  Company Number: US-LEXICON PHARMACEUTICALS, INC-18-1606-01174

PATIENT
  Sex: Male

DRUGS (1)
  1. TELOTRISTAT ETHYL [Suspect]
     Active Substance: TELOTRISTAT ETHYL
     Indication: CARCINOID SYNDROME
     Route: 048
     Dates: start: 20180629

REACTIONS (5)
  - Asthenia [Not Recovered/Not Resolved]
  - Flatulence [Not Recovered/Not Resolved]
  - Abdominal distension [Unknown]
  - Myalgia [Not Recovered/Not Resolved]
  - Flushing [Not Recovered/Not Resolved]
